FAERS Safety Report 7890041-4 (Version None)
Quarter: 2011Q4

REPORT INFORMATION
  Report Type: 
  Country: None (occurrence: None)
  Receive Date: 20111103
  Receipt Date: 20111025
  Transmission Date: 20120403
  Serious: Yes (Other)
  Sender: FDA-Public Use
  Company Number: PHHY2009CA46148

PATIENT
  Sex: Female

DRUGS (17)
  1. EXJADE [Suspect]
     Indication: IRON OVERLOAD
     Dosage: 1000 MG, QD
     Route: 048
     Dates: start: 20080201, end: 20110315
  2. MANERIX [Concomitant]
  3. APO-MOCLOBEMIDE [Concomitant]
     Dosage: 75 MG, QD
  4. MAXERAN [Concomitant]
  5. TYLENOL-500 [Concomitant]
  6. DEFEROXAMINE MESYLATE [Concomitant]
  7. ONDASETRON [Concomitant]
     Dosage: 8 MG, TID
  8. TEMAZEPAM [Concomitant]
     Dosage: 15 MG, QD
  9. EXJADE [Suspect]
     Dosage: 1000 MG, QD
     Route: 048
     Dates: end: 20110321
  10. LEVOTHYROXINE SODIUM [Concomitant]
  11. EXJADE [Suspect]
     Indication: MYELODYSPLASTIC SYNDROME
     Dosage: 2000 MG, QD
     Route: 048
     Dates: start: 20071001
  12. TEMAZEPAM [Concomitant]
     Indication: DEPRESSION
     Dosage: 50 MG, QD
  13. SYNTHROID [Concomitant]
     Indication: THYROID DISORDER
     Dosage: 0.1 MG, QD
  14. AMITRIPTYLINE HCL [Concomitant]
     Dosage: 50 MG, QD
  15. OXYCODONE AND ACETAMINOPHEN [Concomitant]
  16. EXJADE [Suspect]
     Dosage: 500 MG, QD
     Route: 048
     Dates: end: 20110301
  17. ELAVIL [Concomitant]
     Dosage: 50 MG, QD

REACTIONS (13)
  - GASTRIC POLYPS [None]
  - PHARYNGEAL OEDEMA [None]
  - THROAT TIGHTNESS [None]
  - SERUM FERRITIN INCREASED [None]
  - DIARRHOEA [None]
  - PHARYNGITIS [None]
  - THROAT IRRITATION [None]
  - NAUSEA [None]
  - DYSPHAGIA [None]
  - DRY MOUTH [None]
  - OROPHARYNGEAL PAIN [None]
  - CONSTIPATION [None]
  - SWOLLEN TONGUE [None]
